FAERS Safety Report 6880309-2 (Version None)
Quarter: 2010Q3

REPORT INFORMATION
  Report Type: 
  Country: None (occurrence: None)
  Receive Date: 20100728
  Receipt Date: 20100720
  Transmission Date: 20110219
  Serious: Yes (Hospitalization)
  Sender: FDA-Public Use
  Company Number: CA-ALLERGAN-1005547US

PATIENT
  Age: 65 Year
  Sex: Male

DRUGS (9)
  1. BOTULINUM TOXIN TYPE A [Suspect]
     Indication: TORTICOLLIS
     Dosage: 200 UNITS, SINGLE
     Route: 030
     Dates: start: 20090703, end: 20090703
  2. BOTULINUM TOXIN TYPE A [Suspect]
     Dosage: 200 UNITS, SINGLE
     Route: 030
     Dates: start: 19930406, end: 19930406
  3. BOTULINUM TOXIN TYPE A [Suspect]
     Dosage: UNK
     Route: 030
     Dates: start: 20080711, end: 20080711
  4. BOTULINUM TOXIN TYPE A [Suspect]
     Dosage: UNK
     Route: 030
     Dates: start: 20081003, end: 20081003
  5. BOTULINUM TOXIN TYPE A [Suspect]
     Dosage: UNK
     Route: 030
     Dates: start: 20090109, end: 20090109
  6. BOTULINUM TOXIN TYPE A [Suspect]
     Dosage: UNK
     Route: 030
     Dates: start: 20090403, end: 20090403
  7. BOTULINUM TOXIN TYPE A [Suspect]
     Dosage: UNK
     Route: 030
     Dates: start: 20091002, end: 20091002
  8. BOTULINUM TOXIN TYPE A [Suspect]
     Dosage: UNK
     Route: 030
     Dates: start: 20100108, end: 20100108
  9. BOTULINUM TOXIN TYPE A [Suspect]
     Dosage: UNK
     Route: 030
     Dates: start: 20100423, end: 20100423

REACTIONS (5)
  - ASTHENIA [None]
  - HAEMATURIA [None]
  - POLLAKIURIA [None]
  - PYREXIA [None]
  - UROSEPSIS [None]
